FAERS Safety Report 7466168-8 (Version None)
Quarter: 2011Q2

REPORT INFORMATION
  Report Type: 
  Country: None (occurrence: None)
  Receive Date: 20110509
  Receipt Date: 20110502
  Transmission Date: 20111010
  Serious: Yes (Hospitalization)
  Sender: FDA-Public Use
  Company Number: PHHY2011FR36700

PATIENT
  Sex: Male
  Weight: 31 kg

DRUGS (1)
  1. SOMATROPIN RDNA [Suspect]
     Indication: BLOOD GROWTH HORMONE
     Dosage: 15 MG/DAY (STRENGTH: 6.7 MG/ML)
     Route: 058
     Dates: start: 20090315, end: 20091025

REACTIONS (3)
  - FALL [None]
  - EXTRADURAL HAEMATOMA [None]
  - FRACTURE [None]
